FAERS Safety Report 7040964-3 (Version None)
Quarter: 2010Q4

REPORT INFORMATION
  Report Type: 
  Country: None (occurrence: None)
  Receive Date: 20101013
  Receipt Date: 20101002
  Transmission Date: 20110411
  Serious: Yes (Other)
  Sender: FDA-Public Use
  Company Number: CZ-SHIRE-SPV1-2010-01690

PATIENT
  Sex: Female
  Weight: 9.4 kg

DRUGS (4)
  1. VPRIV [Suspect]
     Indication: GAUCHER'S DISEASE
     Dosage: 89 IU/KG, 1X/2WKS
     Route: 041
     Dates: start: 20100611
  2. ANTIHISTAMINES [Concomitant]
     Indication: PREMEDICATION
     Dates: start: 20100930
  3. PARACETAMOL [Concomitant]
     Indication: PREMEDICATION
     Dates: start: 20100930
  4. AKTIFERRIN                         /00631201/ [Concomitant]
     Indication: ANAEMIA
     Dosage: 10 DROPLETS, 2X/DAY:BID
     Route: 065
     Dates: start: 20100501

REACTIONS (9)
  - BACTERAEMIA [None]
  - HYPERPYREXIA [None]
  - INFUSION RELATED REACTION [None]
  - LIVEDO RETICULARIS [None]
  - OFF LABEL USE [None]
  - RHINITIS [None]
  - TACHYCARDIA [None]
  - TACHYPNOEA [None]
  - TREMOR [None]
